FAERS Safety Report 22147765 (Version 1)
Quarter: 2023Q1

REPORT INFORMATION
  Report Type: Report from Study
  Country: CN (occurrence: CN)
  Receive Date: 20230328
  Receipt Date: 20230328
  Transmission Date: 20230418
  Serious: Yes (Hospitalization)
  Sender: FDA-Public Use
  Company Number: CN-SEATTLE GENETICS-2023SGN02626

PATIENT
  Age: 57 Year
  Sex: Female
  Weight: 62.9 kg

DRUGS (13)
  1. TUCATINIB [Suspect]
     Active Substance: TUCATINIB
     Indication: HER2 positive breast cancer
     Dosage: 300 MG, BID
     Route: 048
     Dates: start: 20230216, end: 20230311
  2. ADO-TRASTUZUMAB EMTANSINE [Suspect]
     Active Substance: ADO-TRASTUZUMAB EMTANSINE
     Indication: HER2 positive breast cancer
     Dosage: 3.6 MG/KG, Q21D
     Route: 042
     Dates: start: 20230216, end: 20230308
  3. NIFEDIPINE SUSTAINED RELEASE TABLETS (I) [Concomitant]
     Indication: Hypertension
     Dosage: 30 MG
     Route: 048
     Dates: start: 20230220
  4. URSODIOL [Concomitant]
     Active Substance: URSODIOL
     Indication: Prophylaxis
     Dosage: 250 MG, BID
     Route: 048
     Dates: start: 20230311
  5. URSODIOL [Concomitant]
     Active Substance: URSODIOL
     Dosage: 250 MG, BID
     Route: 048
     Dates: start: 20230227, end: 20230309
  6. URSODIOL [Concomitant]
     Active Substance: URSODIOL
     Dosage: 250 MG, QD
     Route: 048
     Dates: start: 20230310, end: 20230310
  7. PHOSPHOLIPID [Concomitant]
     Active Substance: PHOSPHOLIPID
     Indication: Prophylaxis
     Dosage: 0.456 MG, TID
     Dates: start: 20230311
  8. PHOSPHOLIPID [Concomitant]
     Active Substance: PHOSPHOLIPID
     Dosage: 0.456 MG, TID
     Route: 048
     Dates: start: 20230227, end: 20230309
  9. PHOSPHOLIPID [Concomitant]
     Active Substance: PHOSPHOLIPID
     Dosage: 0.456 MG, BID
     Route: 048
     Dates: start: 20230310, end: 20230310
  10. BICYCLOL [Concomitant]
     Active Substance: BICYCLOL
     Indication: Prophylaxis
     Dosage: 50 MG, TID
     Dates: start: 20230227, end: 20230309
  11. BICYCLOL [Concomitant]
     Active Substance: BICYCLOL
     Dosage: 50 MG, BID
     Route: 048
     Dates: start: 20230310, end: 20230310
  12. BICYCLOL [Concomitant]
     Active Substance: BICYCLOL
     Dosage: 50 MG, TID
     Route: 048
     Dates: start: 20230311
  13. LEUCOGEN [Concomitant]
     Active Substance: LEUCOGEN
     Indication: Platelet count decreased
     Dosage: 40 MG, TID
     Route: 048
     Dates: start: 20230227

REACTIONS (1)
  - Thrombocytopenia [Recovered/Resolved]

NARRATIVE: CASE EVENT DATE: 20230311
